FAERS Safety Report 5468924-4 (Version None)
Quarter: 2007Q3

REPORT INFORMATION
  Report Type: 
  Country: None (occurrence: None)
  Receive Date: 20070926
  Receipt Date: 20070921
  Transmission Date: 20080115
  Serious: Yes (Disabling)
  Sender: FDA-Public Use
  Company Number: FR-MERCK-0704FRA00034

PATIENT
  Age: 49 Year
  Sex: Female

DRUGS (2)
  1. MECTIZAN [Suspect]
     Indication: ACARODERMATITIS
     Route: 048
     Dates: start: 20070405, end: 20070405
  2. MECTIZAN [Suspect]
     Route: 048
     Dates: start: 20070420, end: 20070420

REACTIONS (1)
  - URTICARIA CHRONIC [None]
